FAERS Safety Report 9901883 (Version 1)
Quarter: 2014Q1

REPORT INFORMATION
  Report Type: Spontaneous
  Country: FR (occurrence: FR)
  Receive Date: 20140217
  Receipt Date: 20140217
  Transmission Date: 20141002
  Serious: Yes (Other)
  Sender: FDA-Public Use
  Company Number: FR-VIIV HEALTHCARE LIMITED-B0967317A

PATIENT
  Age: 73 Year
  Sex: Male

DRUGS (5)
  1. KIVEXA [Suspect]
     Indication: HIV INFECTION
     Dosage: 1TAB PER DAY
     Route: 048
     Dates: start: 20130311, end: 20131107
  2. ISENTRESS [Concomitant]
     Indication: HIV INFECTION
     Route: 065
     Dates: start: 20120806
  3. DETENSIEL [Concomitant]
     Indication: HYPERTENSION
     Route: 065
  4. TAHOR [Concomitant]
     Indication: HYPERCHOLESTEROLAEMIA
     Route: 065
  5. BECOTIDE [Concomitant]
     Indication: ASTHMA
     Route: 065

REACTIONS (2)
  - Transaminases increased [Recovered/Resolved]
  - Diarrhoea [Recovered/Resolved]
